FAERS Safety Report 24259957 (Version 4)
Quarter: 2025Q3

REPORT INFORMATION
  Report Type: Spontaneous
  Country: JP (occurrence: JP)
  Receive Date: 20240828
  Receipt Date: 20250809
  Transmission Date: 20251020
  Serious: Yes (Other)
  Sender: ALEXION PHARMACEUTICALS
  Company Number: 2024A155278

PATIENT
  Age: 63 Year
  Sex: Female
  Weight: 66 kg

DRUGS (22)
  1. FASLODEX [Suspect]
     Active Substance: FULVESTRANT
     Indication: Breast cancer female
     Dates: start: 20220302, end: 20230710
  2. FASLODEX [Suspect]
     Active Substance: FULVESTRANT
     Dates: start: 20231127, end: 20240708
  3. BILASTINE [Concomitant]
     Active Substance: BILASTINE
  4. BILASTINE [Concomitant]
     Active Substance: BILASTINE
     Route: 065
  5. TALION [Concomitant]
     Route: 065
  6. TALION [Concomitant]
     Route: 065
  7. OXYCONTIN [Concomitant]
     Active Substance: OXYCODONE HYDROCHLORIDE
     Indication: Metastases to bone
  8. OXINORM [Concomitant]
     Indication: Metastases to bone
  9. OXINORM [Concomitant]
  10. CALCIUM CARBONATE\CHOLECALCIFEROL\MAGNESIUM CARBONATE [Concomitant]
     Active Substance: CALCIUM CARBONATE\CHOLECALCIFEROL\MAGNESIUM CARBONATE
     Indication: Metastases to bone
  11. CALCIUM CARBONATE\CHOLECALCIFEROL\MAGNESIUM CARBONATE [Concomitant]
     Active Substance: CALCIUM CARBONATE\CHOLECALCIFEROL\MAGNESIUM CARBONATE
     Dates: start: 20211111
  12. CALONAL [Concomitant]
     Active Substance: ACETAMINOPHEN
     Indication: Metastases to bone
     Route: 065
  13. CALONAL [Concomitant]
     Active Substance: ACETAMINOPHEN
     Dates: start: 20220117
  14. CARBOHYDRATES\FATTY ACIDS\MINERALS\PROTEIN\VITAMINS [Concomitant]
     Active Substance: CARBOHYDRATES\FATTY ACIDS\MINERALS\PROTEIN\VITAMINS
     Indication: Feeding disorder
     Route: 065
  15. CARBOHYDRATES\FATTY ACIDS\MINERALS\PROTEIN\VITAMINS [Concomitant]
     Active Substance: CARBOHYDRATES\FATTY ACIDS\MINERALS\PROTEIN\VITAMINS
     Indication: Feeding disorder
     Dates: start: 20220523
  16. DIETARY SUPPLEMENT\PROBIOTICS [Concomitant]
     Active Substance: DIETARY SUPPLEMENT\PROBIOTICS NOS
     Indication: Irritable bowel syndrome
  17. DIETARY SUPPLEMENT\PROBIOTICS [Concomitant]
     Active Substance: DIETARY SUPPLEMENT\PROBIOTICS NOS
     Dates: start: 20240422
  18. VERZENIO [Concomitant]
     Active Substance: ABEMACICLIB
     Route: 065
  19. VERZENIO [Concomitant]
     Active Substance: ABEMACICLIB
     Route: 065
  20. DENOSUMAB [Concomitant]
     Active Substance: DENOSUMAB
     Indication: Metastases to bone
  21. DENOSUMAB [Concomitant]
     Active Substance: DENOSUMAB
     Dosage: 120 MILLIGRAM
     Dates: start: 20211111
  22. OXYCODONE HYDROCHLORIDE [Concomitant]
     Active Substance: OXYCODONE HYDROCHLORIDE
     Indication: Metastases to bone

REACTIONS (4)
  - Interstitial lung disease [Unknown]
  - Injection site ulcer [Not Recovered/Not Resolved]
  - Injection site necrosis [Unknown]
  - Injection site haemorrhage [Unknown]

NARRATIVE: CASE EVENT DATE: 20220312
